FAERS Safety Report 23370653 (Version 1)
Quarter: 2024Q1

REPORT INFORMATION
  Report Type: Spontaneous
  Country: FR (occurrence: FR)
  Receive Date: 20240105
  Receipt Date: 20240105
  Transmission Date: 20240410
  Serious: Yes (Hospitalization)
  Sender: FDA-Public Use
  Company Number: None

PATIENT
  Age: 68 Year
  Sex: Male
  Weight: 97 kg

DRUGS (2)
  1. INLYTA [Suspect]
     Active Substance: AXITINIB
     Indication: Renal cancer metastatic
     Dosage: 10 MG, 1X/DAY
     Route: 048
     Dates: start: 20210610, end: 20210819
  2. KEYTRUDA [Suspect]
     Active Substance: PEMBROLIZUMAB
     Indication: Renal cancer metastatic
     Dosage: 200 MG, EVERY 3 WEEKS
     Route: 042
     Dates: start: 20210622, end: 202109

REACTIONS (4)
  - Hepatic cytolysis [Recovered/Resolved]
  - Myocardial infarction [Recovered/Resolved with Sequelae]
  - Interstitial lung disease [Recovered/Resolved]
  - Off label use [Unknown]

NARRATIVE: CASE EVENT DATE: 20210813
